FAERS Safety Report 6886478-2 (Version None)
Quarter: 2010Q3

REPORT INFORMATION
  Report Type: 
  Country: None (occurrence: None)
  Receive Date: 20100730
  Receipt Date: 20100716
  Transmission Date: 20110219
  Serious: Yes (Other)
  Sender: FDA-Public Use
  Company Number: BE-PAR PHARMACEUTICAL, INC-2010SCPR001951

PATIENT

DRUGS (8)
  1. IBUPROFEN TABLETS [Suspect]
     Indication: ANKLE FRACTURE
     Dosage: 1200 MG, QD
     Route: 048
  2. IBUPROFEN TABLETS [Suspect]
     Dosage: UNK
  3. METFORMIN HCL [Suspect]
     Indication: DIABETES MELLITUS
     Dosage: 2550 MG, QD
     Route: 065
  4. LISINOPRIL [Concomitant]
     Indication: PRODUCT USED FOR UNKNOWN INDICATION
     Dosage: 20 MG, UNKNOWN
     Route: 065
  5. HEPARIN SODIUM [Concomitant]
     Indication: ANKLE FRACTURE
     Dosage: UNK
     Route: 058
  6. INSULIN [Concomitant]
     Indication: DIABETES MELLITUS
     Dosage: 32 I.U., UNKNOWN
     Route: 065
  7. ENOXAPARIN SODIUM [Concomitant]
     Indication: PRODUCT USED FOR UNKNOWN INDICATION
     Dosage: 40 MG, UNKNOWN
     Route: 058
  8. BUMETANIDE [Concomitant]
     Indication: CARDIAC FAILURE
     Dosage: 1 MG, UNKNOWN
     Route: 065

REACTIONS (3)
  - GENERAL PHYSICAL HEALTH DETERIORATION [None]
  - METABOLIC ACIDOSIS [None]
  - RENAL FAILURE ACUTE [None]
